FAERS Safety Report 14910977 (Version 1)
Quarter: 2018Q2

REPORT INFORMATION
  Report Type: Spontaneous
  Country: US (occurrence: US)
  Receive Date: 20180517
  Receipt Date: 20180517
  Transmission Date: 20180711
  Serious: No
  Sender: FDA-Public Use
  Company Number: US-B.I. PHARMACEUTICALS,INC./RIDGEFIELD-2018-BI-025820

PATIENT
  Age: 73 Year
  Sex: Female

DRUGS (1)
  1. COMBIVENT [Suspect]
     Active Substance: ALBUTEROL SULFATE\IPRATROPIUM BROMIDE
     Indication: CHRONIC OBSTRUCTIVE PULMONARY DISEASE
     Dosage: 2 INHALATION QID; STRENGTH: 20MCG /100 MCG; FORM: INHALATION SPRAY ADMIN NO ACTION: DOSE NOT CHANGED
     Route: 055
     Dates: start: 2015

REACTIONS (4)
  - Abdominal discomfort [Not Recovered/Not Resolved]
  - Incorrect dose administered [Not Recovered/Not Resolved]
  - Constipation [Not Recovered/Not Resolved]
  - Bacteriuria [Not Recovered/Not Resolved]

NARRATIVE: CASE EVENT DATE: 2015
